FAERS Safety Report 5644581-9 (Version None)
Quarter: 2008Q1

REPORT INFORMATION
  Report Type: 
  Country: None (occurrence: None)
  Receive Date: 20080229
  Receipt Date: 20070320
  Transmission Date: 20080703
  Serious: No
  Sender: FDA-Public Use
  Company Number: A0643938A

PATIENT
  Age: 43 Year
  Sex: Male

DRUGS (2)
  1. VALTREX [Suspect]
     Indication: GENITAL HERPES
     Dosage: 1G THREE TIMES PER DAY
     Route: 048
     Dates: start: 20070301
  2. NO CONCURRENT MEDICATION [Concomitant]

REACTIONS (2)
  - ACNE [None]
  - DRY SKIN [None]
